FAERS Safety Report 8406082-4 (Version None)
Quarter: 2012Q2

REPORT INFORMATION
  Report Type: 
  Country: None (occurrence: None)
  Receive Date: 20120604
  Receipt Date: 20120528
  Transmission Date: 20120825
  Serious: Yes (Other)
  Sender: FDA-Public Use
  Company Number: US-TEVA-340789USA

PATIENT
  Age: 63 Year
  Sex: Female

DRUGS (11)
  1. FAMOTIDINE [Concomitant]
     Dosage: TOTAL DAILY DOSE OF 40MG
     Route: 048
  2. TRIHEXYPHENIDYL HCL [Concomitant]
     Dosage: TOTAL DAILY DOSE OF 7.5MG
     Route: 048
  3. PAROXETINE HCL [Suspect]
     Dosage: 40 MILLIGRAM;
     Route: 048
  4. ESTROPIPATE [Concomitant]
     Dosage: TOTAL DAILY DOSE OF 0.75MG
     Route: 048
  5. LORAZEPAM [Concomitant]
     Dosage: TOTAL DAILY DOSE OF 1MG
     Route: 048
  6. MEDROXYPROGESTERONE [Concomitant]
     Dosage: TOTAL DAILY DOSE OF 2.5MG
     Route: 048
  7. MONTELUKAST [Concomitant]
     Dosage: TOTAL DAILY DOSE OF 10MG
     Route: 048
  8. QUETIAPINE [Suspect]
     Dosage: 800 MILLIGRAM;
     Route: 048
  9. ATORVASTATIN CALCIUM [Concomitant]
     Dosage: TOTAL DAILY DOSE OF 10MG
     Route: 048
  10. SITAGLIPTIN [Concomitant]
     Dosage: TOTAL DAILY DOSE OF 100MG
     Route: 048
  11. OMEPRAZOLE [Concomitant]
     Dosage: TOTAL DAILY DOSE OF 20MG
     Route: 048

REACTIONS (8)
  - ABNORMAL BEHAVIOUR [None]
  - ANAEMIA [None]
  - DISORIENTATION [None]
  - PNEUMONIA [None]
  - ELECTROCARDIOGRAM QT PROLONGED [None]
  - DELIRIUM [None]
  - GASTROINTESTINAL HAEMORRHAGE [None]
  - HEPATIC ENZYME ABNORMAL [None]
